FAERS Safety Report 18980391 (Version 1)
Quarter: 2021Q1

REPORT INFORMATION
  Report Type: Spontaneous
  Country: US (occurrence: US)
  Receive Date: 20210307
  Receipt Date: 20210307
  Transmission Date: 20210420
  Serious: Yes (Disabling, Other)
  Sender: FDA-Public Use
  Company Number: None

PATIENT
  Age: 48 Year
  Sex: Female
  Weight: 78.3 kg

DRUGS (6)
  1. SPIRONOLACTONE. [Concomitant]
     Active Substance: SPIRONOLACTONE
  2. CLARITIN [Concomitant]
     Active Substance: LORATADINE
  3. CBD GUMMY [Concomitant]
  4. FLUOXETINE [Concomitant]
     Active Substance: FLUOXETINE HYDROCHLORIDE
  5. AIMOVIG (ERENUMAB) [Suspect]
     Active Substance: ERENUMAB
     Indication: MIGRAINE
     Dosage: ?          QUANTITY:1 INJECTION(S);OTHER FREQUENCY:ONCE A MONTH;?
     Route: 058
     Dates: start: 20200701
  6. PROPANOLOL [Concomitant]
     Active Substance: PROPRANOLOL HYDROCHLORIDE

REACTIONS (4)
  - Alopecia [None]
  - Glycosylated haemoglobin increased [None]
  - Drug delivery system malfunction [None]
  - Blood cholesterol increased [None]

NARRATIVE: CASE EVENT DATE: 20210216
